FAERS Safety Report 5220353-4 (Version None)
Quarter: 2006Q4

REPORT INFORMATION
  Report Type: 
  Country: None (occurrence: None)
  Receive Date: 20061201
  Receipt Date: 20060711
  Transmission Date: 20070319
  Serious: No
  Sender: FDA-Public Use
  Company Number: 2006PV017377

PATIENT
  Age: 44 Year
  Sex: Female

DRUGS (2)
  1. BYETTA [Suspect]
     Indication: DIABETES MELLITUS NON-INSULIN-DEPENDENT
     Dosage: 5 MCG;BID;SC
     Route: 058
     Dates: start: 20060501, end: 20060708
  2. GLUCOPHAGE [Concomitant]

REACTIONS (7)
  - BODY FAT DISORDER [None]
  - COUGH [None]
  - INJECTION SITE IRRITATION [None]
  - INJECTION SITE RASH [None]
  - PRURITUS GENERALISED [None]
  - THROAT IRRITATION [None]
  - WEIGHT DECREASED [None]
